FAERS Safety Report 9842964 (Version 1)
Quarter: 2014Q1

REPORT INFORMATION
  Report Type: Spontaneous
  Country: US (occurrence: US)
  Receive Date: 20140124
  Receipt Date: 20140124
  Transmission Date: 20141002
  Serious: Yes (Other)
  Sender: FDA-Public Use
  Company Number: US-PFIZER INC-2014021805

PATIENT
  Sex: Male

DRUGS (3)
  1. ELIQUIS [Suspect]
     Dosage: UNK
  2. CELEBREX [Suspect]
     Dosage: UNK
  3. ASPIRIN [Suspect]
     Dosage: 325 MG, UNK

REACTIONS (1)
  - Gastrointestinal haemorrhage [Unknown]
